FAERS Safety Report 9295618 (Version 1)
Quarter: 2013Q1

REPORT INFORMATION
  Report Type: Spontaneous
  Country: US (occurrence: None)
  Receive Date: 20121227
  Receipt Date: 20121227
  Transmission Date: 20140127
  Serious: No
  Sender: FDA-Public Use
  Company Number: PHEH2012US006932

PATIENT
  Sex: Female
  Weight: 73.9 kg

DRUGS (12)
  1. EXJADE (*CGP72670*) DISPERSIBLE TABLET, 500MG [Suspect]
     Indication: IRON OVERLOAD
     Route: 048
  2. FOLIC ACID (FOLIC ACID) TABLET [Concomitant]
  3. HYDROXYUREA (HYDROXYCARBAMIDE) CAPSULE [Concomitant]
  4. AMBIEN CR (ZOLPIDEM TARTRATE) TABLET [Concomitant]
  5. DILAUDID (HYDROMORPHONE HYDROCHLORIDE) TALET [Concomitant]
  6. FLOVENT (FLUTICASONE PROPIONATE) AEROSOL [Concomitant]
  7. LOVENOX (HEPARIN-FRACTION, SODIUM SALT) INJECTION, 100MG/ML [Concomitant]
  8. ZYRTEC (CETIRIZINE HYDROCHLORIDE) TABLET [Concomitant]
  9. FENTANYL (FENTANYL) 12 UG/HR [Concomitant]
  10. PHENERGAN (PROMETHAZINE HYDROCHLORIDE) SUPPOSITORY [Concomitant]
  11. OXYCONTIN (OXYCODONE HYDROCHLORIDE) TABLET [Concomitant]
  12. BLOOD TRANSFUSION, AUXILIARY PRODUCTS (NO INGREDIENTS/SUBSTANCES) [Concomitant]

REACTIONS (2)
  - Iron overload [None]
  - Nausea [None]
